FAERS Safety Report 7478899-4 (Version None)
Quarter: 2011Q2

REPORT INFORMATION
  Report Type: 
  Country: None (occurrence: None)
  Receive Date: 20110511
  Receipt Date: 20110511
  Transmission Date: 20111010
  Serious: Yes (Hospitalization)
  Sender: FDA-Public Use
  Company Number: None

PATIENT
  Age: 52 Year
  Sex: Female
  Weight: 74.8435 kg

DRUGS (1)
  1. NICOTINE [Suspect]
     Indication: SMOKING CESSATION THERAPY
     Dosage: APROX 2 CARTRIGES PER DAY PO
     Route: 048
     Dates: start: 20110201, end: 20110509

REACTIONS (2)
  - PLEURISY [None]
  - PULMONARY OEDEMA [None]
